FAERS Safety Report 13006521 (Version 17)
Quarter: 2018Q1

REPORT INFORMATION
  Report Type: Spontaneous
  Country: US (occurrence: US)
  Receive Date: 20161207
  Receipt Date: 20180222
  Transmission Date: 20180508
  Serious: Yes (Hospitalization)
  Sender: FDA-Public Use
  Company Number: US-ACTELION-A-US2016-146359

PATIENT
  Age: 56 Year
  Sex: Female
  Weight: 70.3 kg

DRUGS (3)
  1. ADCIRCA [Concomitant]
     Active Substance: TADALAFIL
  2. TRACLEER [Suspect]
     Active Substance: BOSENTAN
     Indication: PULMONARY ARTERIAL HYPERTENSION
     Dosage: 125 MG, BID
     Route: 048
     Dates: start: 20150206
  3. VELETRI [Suspect]
     Active Substance: EPOPROSTENOL
     Indication: PULMONARY ARTERIAL HYPERTENSION
     Dosage: 35 NG/KG, PER MIN
     Route: 042
     Dates: start: 20141204

REACTIONS (19)
  - Hypoglycaemia [Unknown]
  - Oxygen consumption increased [Unknown]
  - Chills [Unknown]
  - Flushing [Unknown]
  - Nausea [Unknown]
  - Vomiting [Unknown]
  - Headache [Unknown]
  - Fluid retention [Unknown]
  - Diarrhoea [Unknown]
  - Hyponatraemia [Unknown]
  - Pyrexia [Unknown]
  - Hypotension [Unknown]
  - Dyspnoea [Unknown]
  - Nasopharyngitis [Unknown]
  - Thyroid disorder [Unknown]
  - Nasal congestion [Unknown]
  - Abdominal discomfort [Unknown]
  - Goitre [Unknown]
  - Pain in jaw [Unknown]
